FAERS Safety Report 14672919 (Version 2)
Quarter: 2018Q2

REPORT INFORMATION
  Report Type: Spontaneous
  Country: US (occurrence: US)
  Receive Date: 20180323
  Receipt Date: 20180403
  Transmission Date: 20180711
  Serious: Yes (Other)
  Sender: FDA-Public Use
  Company Number: US-AUROBINDO-AUR-APL-2018-015619

PATIENT
  Age: 32 Year
  Sex: Male

DRUGS (1)
  1. PANTOPRAZOLE [Suspect]
     Active Substance: PANTOPRAZOLE
     Indication: DYSPEPSIA
     Dosage: ()
     Route: 065

REACTIONS (2)
  - Granulomatous dermatitis [Not Recovered/Not Resolved]
  - Dermatitis acneiform [Not Recovered/Not Resolved]
